FAERS Safety Report 26150969 (Version 1)
Quarter: 2025Q4

REPORT INFORMATION
  Report Type: Spontaneous
  Country: CN (occurrence: CN)
  Receive Date: 20251212
  Receipt Date: 20251212
  Transmission Date: 20260117
  Serious: Yes (Life-Threatening, Other)
  Sender: BAYER HEALTHCARE PHARMACEUTICALS INC.
  Company Number: CN-BAYER-2025A163276

PATIENT
  Age: 84 Year
  Sex: Female
  Weight: 50 kg

DRUGS (2)
  1. ULTRAVIST [Suspect]
     Active Substance: IOPROMIDE
     Indication: Computerised tomogram
     Dosage: 35 ML, ONCE, PUMP
     Route: 050
     Dates: start: 20251208, end: 20251208
  2. ULTRAVIST [Suspect]
     Active Substance: IOPROMIDE
     Indication: Intracranial aneurysm

REACTIONS (8)
  - Anaphylactic shock [Recovering/Resolving]
  - Pulse absent [Recovered/Resolved]
  - Altered state of consciousness [Recovered/Resolved]
  - Unresponsive to stimuli [Recovering/Resolving]
  - Blood pressure increased [None]
  - Respiratory disorder [Recovering/Resolving]
  - Conjunctival oedema [Recovering/Resolving]
  - Urinary incontinence [Recovering/Resolving]

NARRATIVE: CASE EVENT DATE: 20251208
